FAERS Safety Report 5901185-8 (Version None)
Quarter: 2008Q3

REPORT INFORMATION
  Report Type: 
  Country: None (occurrence: None)
  Receive Date: 20080924
  Receipt Date: 20080916
  Transmission Date: 20090109
  Serious: Yes (Hospitalization)
  Sender: FDA-Public Use
  Company Number: 08P-020-0476803-00

PATIENT
  Sex: Female

DRUGS (5)
  1. SYNAGIS [Suspect]
     Dosage: INTRAMUSCULAR
     Route: 030
     Dates: start: 20080606, end: 20080606
  2. FUROSEMIDE [Concomitant]
  3. AMIODARONE [Concomitant]
  4. POTASSIUM(SYRUP) [Concomitant]
  5. SODIUM CHLORIDE (SOLUTION) [Concomitant]

REACTIONS (2)
  - INCREASED UPPER AIRWAY SECRETION [None]
  - PYREXIA [None]
